FAERS Safety Report 8780645 (Version 3)
Quarter: 2013Q2

REPORT INFORMATION
  Report Type: Report from Study
  Country: US (occurrence: US)
  Receive Date: 20120913
  Receipt Date: 20130619
  Transmission Date: 20140414
  Serious: Yes (Death, Other)
  Sender: FDA-Public Use
  Company Number: US-ROCHE-1113271

PATIENT
  Sex: Male

DRUGS (8)
  1. AVASTIN [Suspect]
     Indication: MALIGNANT RESPIRATORY TRACT NEOPLASM
     Route: 065
  2. TARCEVA [Suspect]
     Indication: MALIGNANT RESPIRATORY TRACT NEOPLASM
     Route: 065
  3. CARBOPLATIN [Concomitant]
     Route: 065
     Dates: start: 20040811
  4. GEMZAR [Concomitant]
     Route: 065
     Dates: start: 20040811
  5. TAXOTERE [Concomitant]
  6. FLUOROURACIL [Concomitant]
  7. MITOMYCIN [Concomitant]
  8. ZOMETA [Concomitant]

REACTIONS (12)
  - Death [Fatal]
  - Metastases to bone [Unknown]
  - Neuropathy peripheral [Unknown]
  - Disease progression [Unknown]
  - Onycholysis [Unknown]
  - Nausea [Unknown]
  - Vomiting [Unknown]
  - Diarrhoea [Unknown]
  - Neck pain [Unknown]
  - Musculoskeletal pain [Unknown]
  - Arthralgia [Unknown]
  - Metastases to lung [Unknown]
